FAERS Safety Report 10272663 (Version 2)
Quarter: 2014Q3

REPORT INFORMATION
  Report Type: Spontaneous
  Country: IL (occurrence: IL)
  Receive Date: 20140702
  Receipt Date: 20140706
  Transmission Date: 20150326
  Serious: Yes (Death)
  Sender: FDA-Public Use
  Company Number: PHHY2014IL081096

PATIENT
  Sex: Female

DRUGS (1)
  1. CERTICAN [Suspect]
     Active Substance: EVEROLIMUS
     Indication: LIVER TRANSPLANT
     Dosage: 1.5 MG, BID
     Dates: start: 20131115

REACTIONS (1)
  - Hepatic cancer metastatic [Fatal]
